FAERS Safety Report 4502102-8 (Version None)
Quarter: 2004Q4

REPORT INFORMATION
  Report Type: 
  Country: None (occurrence: None)
  Receive Date: 20041116
  Receipt Date: 20041110
  Transmission Date: 20050328
  Serious: Yes (Disabling, Other)
  Sender: FDA-Public Use
  Company Number: DE-MERCK-0411DEU00210

PATIENT
  Sex: Female

DRUGS (1)
  1. VIOXX [Suspect]
     Indication: MUSCULOSKELETAL PAIN
     Route: 048
     Dates: start: 20020101

REACTIONS (1)
  - CEREBROVASCULAR ACCIDENT [None]
